FAERS Safety Report 19486842 (Version 1)
Quarter: 2021Q3

REPORT INFORMATION
  Report Type: Report from Study
  Country: JP (occurrence: JP)
  Receive Date: 20210702
  Receipt Date: 20210702
  Transmission Date: 20211014
  Serious: Yes (Other)
  Sender: FDA-Public Use
  Company Number: JP-SUN PHARMACEUTICAL INDUSTRIES LTD-2021RR-302232

PATIENT
  Age: 58 Year
  Sex: Male

DRUGS (3)
  1. CLARITHROMYCIN. [Suspect]
     Active Substance: CLARITHROMYCIN
     Indication: CHEMOTHERAPY
     Dosage: 15 MILLIGRAM/KILOGRAM, DAILY
     Route: 065
  2. ETHAMBUTOL [Suspect]
     Active Substance: ETHAMBUTOL HYDROCHLORIDE
     Indication: CHEMOTHERAPY
     Dosage: 15 MILLIGRAM/KILOGRAM, DAILY
     Route: 065
  3. RIFAMPICINE [Suspect]
     Active Substance: RIFAMPIN
     Indication: CHEMOTHERAPY
     Dosage: 10 MILLIGRAM/KILOGRAM, DAILY
     Route: 065

REACTIONS (1)
  - Disease recurrence [Unknown]
